FAERS Safety Report 6936709-5 (Version None)
Quarter: 2010Q3

REPORT INFORMATION
  Report Type: 
  Country: None (occurrence: None)
  Receive Date: 20100823
  Receipt Date: 20100812
  Transmission Date: 20110219
  Serious: Yes (Other)
  Sender: FDA-Public Use
  Company Number: US-JNJFOC-20100804375

PATIENT
  Sex: Female
  Weight: 60.78 kg

DRUGS (4)
  1. REMICADE [Suspect]
     Indication: CROHN'S DISEASE
     Route: 042
  2. ASACOL [Concomitant]
  3. ZOLOFT [Concomitant]
  4. SLEEPING PILL NOS [Concomitant]

REACTIONS (8)
  - BACK PAIN [None]
  - COUGH [None]
  - HYPOAESTHESIA [None]
  - INFUSION RELATED REACTION [None]
  - INJECTION SITE HAEMATOMA [None]
  - INJECTION SITE SWELLING [None]
  - OROPHARYNGEAL PAIN [None]
  - PARAESTHESIA [None]
